FAERS Safety Report 7777321-8 (Version None)
Quarter: 2011Q3

REPORT INFORMATION
  Report Type: 
  Country: None (occurrence: None)
  Receive Date: 20110926
  Receipt Date: 20110916
  Transmission Date: 20111222
  Serious: Yes (Hospitalization, Other)
  Sender: FDA-Public Use
  Company Number: PHEH2011US04491

PATIENT
  Sex: Male
  Weight: 94.785 kg

DRUGS (33)
  1. SANDOSTATIN [Concomitant]
     Dates: start: 20110621
  2. RESTASIS [Concomitant]
  3. ZANTAC [Concomitant]
  4. AFINITOR [Suspect]
     Dosage: 10 MG, QD
     Route: 048
     Dates: start: 20110830
  5. LANTUS [Concomitant]
  6. LIPOIC ACID [Concomitant]
  7. LISINOPRIL [Concomitant]
  8. NAC ^ALIUD PHARMA^ [Concomitant]
  9. TRIAMCINOLONE ACETONIDE [Concomitant]
  10. VITAMIN D [Concomitant]
  11. SANDOSTATIN [Concomitant]
     Dates: start: 20100715, end: 20110524
  12. METOCLOPRAMIDE [Concomitant]
  13. METROGEL [Concomitant]
  14. MULTI-VITAMINS [Concomitant]
  15. NIFEDIPINE [Concomitant]
  16. ROSUVASTATIN [Concomitant]
  17. SILYMARIN [Concomitant]
  18. TAMSULOSIN HCL [Concomitant]
  19. BENADRYL ^ACHE^ [Concomitant]
     Dosage: 25 MG, UNK
  20. FUROSEMIDE [Concomitant]
     Dosage: 20 MG, UNK
  21. UBIQUINON [Concomitant]
  22. CLOTRIMAZOLE [Concomitant]
     Dosage: 10 MG, UNK
  23. METFORMIN HCL [Concomitant]
  24. FOLIC ACID [Concomitant]
     Dosage: 400 MG, UNK
  25. HUMALOG [Concomitant]
  26. MESALAMINE [Concomitant]
  27. REGLAN [Concomitant]
  28. TYLENOL-500 [Concomitant]
  29. AMLODIPINE [Concomitant]
     Dosage: 2.5 MG, UNK
  30. BYETTA [Concomitant]
  31. LORATADINE [Concomitant]
  32. PREDNISONE [Concomitant]
  33. ALLOPURINOL [Concomitant]
     Dosage: 100 MG, UNK

REACTIONS (14)
  - THROMBOCYTOPENIA [None]
  - ABDOMINAL PAIN [None]
  - DRUG INTERACTION [None]
  - NEOPLASM PROGRESSION [None]
  - FATIGUE [None]
  - PANCYTOPENIA [None]
  - NEOPLASM MALIGNANT [None]
  - PYREXIA [None]
  - BONE MARROW FAILURE [None]
  - DEHYDRATION [None]
  - WEIGHT DECREASED [None]
  - NAUSEA [None]
  - INSOMNIA [None]
  - DECREASED APPETITE [None]
